FAERS Safety Report 7177456-7 (Version None)
Quarter: 2010Q4

REPORT INFORMATION
  Report Type: 
  Country: None (occurrence: None)
  Receive Date: 20101220
  Receipt Date: 20101208
  Transmission Date: 20110411
  Serious: Yes (Hospitalization)
  Sender: FDA-Public Use
  Company Number: FR-GILEAD-2010-0034356

PATIENT
  Sex: Male

DRUGS (11)
  1. TRUVADA [Suspect]
     Indication: ACUTE HIV INFECTION
     Route: 048
     Dates: start: 20100819
  2. NORVIR [Suspect]
     Indication: ACUTE HIV INFECTION
     Route: 048
     Dates: start: 20100819
  3. PREZISTA [Suspect]
     Indication: ACUTE HIV INFECTION
     Route: 048
     Dates: start: 20100819
  4. PREDNISONE [Suspect]
     Indication: LUNG DISORDER
     Route: 048
     Dates: start: 20100810, end: 20100823
  5. METHYLPREDNISOLONE [Suspect]
     Indication: LUNG DISORDER
     Route: 042
     Dates: start: 20100804, end: 20100806
  6. METHYLPREDNISOLONE [Suspect]
     Route: 042
     Dates: start: 20100807, end: 20100809
  7. INNOVAIR [Suspect]
     Indication: BRONCHITIS CHRONIC
     Route: 055
  8. SPIRIVA [Concomitant]
  9. BACTRIM DS [Concomitant]
     Indication: PNEUMOCYSTIS JIROVECI PNEUMONIA
     Route: 048
     Dates: start: 20100731
  10. XATRAL [Concomitant]
     Indication: DYSURIA
     Route: 048
     Dates: start: 20100821
  11. IMOVANE [Concomitant]
     Dates: start: 20100801

REACTIONS (3)
  - CYTOLYTIC HEPATITIS [None]
  - OSTEOPOROTIC FRACTURE [None]
  - SPINAL COMPRESSION FRACTURE [None]
